FAERS Safety Report 7146508-X (Version None)
Quarter: 2010Q4

REPORT INFORMATION
  Report Type: 
  Country: None (occurrence: None)
  Receive Date: 20101208
  Receipt Date: 20101202
  Transmission Date: 20110411
  Serious: Yes (Other)
  Sender: FDA-Public Use
  Company Number: US-PFIZER INC-2008022040

PATIENT
  Sex: Female
  Weight: 54.4 kg

DRUGS (11)
  1. CHANTIX [Suspect]
     Indication: SMOKING CESSATION THERAPY
     Dosage: 0.5 MG, 1X/DAY
     Dates: start: 20061001, end: 20070101
  2. CHANTIX [Suspect]
     Dosage: UNK
     Dates: start: 20070501, end: 20070801
  3. CHANTIX [Suspect]
     Dosage: UNK
     Dates: start: 20071101
  4. CHANTIX [Suspect]
     Dosage: 1 MG, 2X/DAY
     Route: 048
  5. CHANTIX [Suspect]
     Dosage: 1 MG, 1X/DAY
  6. SYNTHROID [Concomitant]
     Indication: HYPOTHYROIDISM
  7. IBUPROFEN [Concomitant]
     Indication: PAIN
  8. VITAMINS [Concomitant]
  9. ADVAIR [Concomitant]
  10. SPIRIVA [Concomitant]
  11. OXYBUTYNIN [Concomitant]
     Indication: BLADDER DISORDER
     Dosage: UNK

REACTIONS (1)
  - DRUG DEPENDENCE [None]
